FAERS Safety Report 17012447 (Version 4)
Quarter: 2021Q4

REPORT INFORMATION
  Report Type: Other
  Country: JP (occurrence: JP)
  Receive Date: 20191108
  Receipt Date: 20211217
  Transmission Date: 20220303
  Serious: Yes (Hospitalization)
  Sender: FDA-Public Use
  Company Number: JP-CHUGAI-A2019026717ROCHE

PATIENT
  Age: 50 Year
  Sex: Female
  Weight: 58 kg

DRUGS (7)
  1. OBINUTUZUMAB [Suspect]
     Active Substance: OBINUTUZUMAB
     Indication: Follicular lymphoma
     Route: 041
     Dates: start: 20190411, end: 20190702
  2. OBINUTUZUMAB [Suspect]
     Active Substance: OBINUTUZUMAB
     Route: 041
     Dates: start: 20190806
  3. OBINUTUZUMAB [Suspect]
     Active Substance: OBINUTUZUMAB
     Route: 041
     Dates: start: 20191029, end: 20191029
  4. OBINUTUZUMAB [Suspect]
     Active Substance: OBINUTUZUMAB
     Route: 041
     Dates: start: 20191224, end: 20191224
  5. OBINUTUZUMAB [Suspect]
     Active Substance: OBINUTUZUMAB
     Route: 041
     Dates: start: 20200218, end: 20200218
  6. OBINUTUZUMAB [Suspect]
     Active Substance: OBINUTUZUMAB
     Route: 041
     Dates: start: 20200414, end: 20200414
  7. BENDAMUSTINE HYDROCHLORIDE [Suspect]
     Active Substance: BENDAMUSTINE HYDROCHLORIDE
     Indication: Follicular lymphoma
     Dosage: DOSAGE IS UNCERTAIN.
     Route: 041
     Dates: start: 20190409, end: 20190904

REACTIONS (3)
  - Myelosuppression [Recovered/Resolved]
  - Febrile neutropenia [Recovered/Resolved]
  - Myalgia [Recovering/Resolving]

NARRATIVE: CASE EVENT DATE: 20190620
